FAERS Safety Report 9153427 (Version 1)
Quarter: 2013Q1

REPORT INFORMATION
  Report Type: Report from Study
  Country: CA (occurrence: CA)
  Receive Date: 20130311
  Receipt Date: 20130311
  Transmission Date: 20140127
  Serious: Yes (Hospitalization)
  Sender: FDA-Public Use
  Company Number: CA-JNJFOC-20130302381

PATIENT
  Age: 0 None
  Sex: Female
  Weight: 3.23 kg

DRUGS (2)
  1. REMICADE [Suspect]
     Indication: FOETAL EXPOSURE DURING PREGNANCY
     Dosage: THE MOTHER WAS ON INFLIXIMAB 400MG ONCE EVERY 7 WEEKS INITIATED ON NOV-2007 FOR CROHN^S DISEASE
     Route: 064
     Dates: start: 200711
  2. COLESTID [Suspect]
     Indication: FOETAL EXPOSURE DURING PREGNANCY
     Route: 064

REACTIONS (2)
  - Neonatal aspiration [Unknown]
  - Apgar score low [Unknown]
